FAERS Safety Report 9046358 (Version 1)
Quarter: 2013Q1

REPORT INFORMATION
  Report Type: Spontaneous
  Country: US (occurrence: None)
  Receive Date: 20130128
  Receipt Date: 20130128
  Transmission Date: 20140127
  Serious: Yes (Hospitalization)
  Sender: FDA-Public Use
  Company Number: None

PATIENT
  Age: 52 Year
  Sex: Male
  Weight: 100 kg

DRUGS (2)
  1. LISINOPRIL [Suspect]
     Route: 048
     Dates: start: 20120607, end: 20120808
  2. HYDROCHLOROTHIAZIDE [Suspect]
     Route: 048
     Dates: start: 20120607, end: 20120808

REACTIONS (1)
  - Renal failure acute [None]
